FAERS Safety Report 25498564 (Version 2)
Quarter: 2025Q3

REPORT INFORMATION
  Report Type: Report from Study
  Country: CN (occurrence: CN)
  Receive Date: 20250701
  Receipt Date: 20250804
  Transmission Date: 20251021
  Serious: Yes (Other)
  Sender: ROCHE
  Company Number: CN-ROCHE-10000324311

PATIENT
  Age: 45 Year
  Sex: Male
  Weight: 70.2 kg

DRUGS (39)
  1. RITUXIMAB [Suspect]
     Active Substance: RITUXIMAB
     Indication: Diffuse large B-cell lymphoma
     Route: 042
     Dates: start: 20241218, end: 20241218
  2. RITUXIMAB [Suspect]
     Active Substance: RITUXIMAB
     Route: 042
     Dates: start: 20250206, end: 20250206
  3. POLATUZUMAB VEDOTIN [Suspect]
     Active Substance: POLATUZUMAB VEDOTIN
     Indication: Diffuse large B-cell lymphoma
     Route: 042
     Dates: start: 20241219, end: 20241219
  4. POLATUZUMAB VEDOTIN [Suspect]
     Active Substance: POLATUZUMAB VEDOTIN
     Route: 042
     Dates: start: 20250207, end: 20250207
  5. EPIRUBICIN HYDROCHLORIDE [Suspect]
     Active Substance: EPIRUBICIN HYDROCHLORIDE
     Indication: Diffuse large B-cell lymphoma
     Route: 042
     Dates: start: 20241219, end: 20241219
  6. EPIRUBICIN HYDROCHLORIDE [Suspect]
     Active Substance: EPIRUBICIN HYDROCHLORIDE
     Route: 042
     Dates: start: 20250207, end: 20250210
  7. ETOPOSIDE [Suspect]
     Active Substance: ETOPOSIDE
     Indication: Diffuse large B-cell lymphoma
     Route: 042
     Dates: start: 20241219, end: 20241222
  8. ETOPOSIDE [Suspect]
     Active Substance: ETOPOSIDE
     Route: 042
     Dates: start: 20250207, end: 20250210
  9. CYCLOPHOSPHAMIDE [Suspect]
     Active Substance: CYCLOPHOSPHAMIDE
     Indication: Diffuse large B-cell lymphoma
     Route: 042
     Dates: start: 20250211, end: 20250211
  10. CYCLOPHOSPHAMIDE [Suspect]
     Active Substance: CYCLOPHOSPHAMIDE
     Route: 042
     Dates: start: 20241223, end: 20241223
  11. DEXAMETHASONE [Suspect]
     Active Substance: DEXAMETHASONE
     Indication: Diffuse large B-cell lymphoma
     Route: 042
     Dates: start: 20241219, end: 20241224
  12. DEXAMETHASONE [Suspect]
     Active Substance: DEXAMETHASONE
     Route: 042
     Dates: start: 20250207, end: 20250211
  13. DECITABINE [Suspect]
     Active Substance: DECITABINE
     Indication: Diffuse large B-cell lymphoma
     Route: 042
     Dates: start: 20250207, end: 20250211
  14. Ambroxol hydrochloride capsules [Concomitant]
     Route: 048
     Dates: start: 20241223
  15. LEUCOGEN [Concomitant]
     Active Substance: LEUCOGEN
     Route: 048
     Dates: start: 20241218
  16. Cefaclor extended-release tablets [Concomitant]
     Route: 048
     Dates: start: 20241218
  17. Entecavir tablets [Concomitant]
     Route: 048
     Dates: start: 20241218
  18. Recombinant human granulocyte-stimulating factor injection [Concomitant]
     Route: 050
     Dates: start: 20250121
  19. Compound acetaminophen tablets [Concomitant]
     Route: 048
     Dates: start: 20250207, end: 20250207
  20. Compound acetaminophen tablets [Concomitant]
     Route: 048
     Dates: start: 20250212, end: 20250212
  21. PROMETHAZINE [Concomitant]
     Active Substance: PROMETHAZINE HYDROCHLORIDE
     Route: 030
     Dates: start: 20250207, end: 20250207
  22. PROMETHAZINE [Concomitant]
     Active Substance: PROMETHAZINE HYDROCHLORIDE
     Route: 030
     Dates: start: 20250212, end: 20250212
  23. Omeprazole enteric-coated capsules [Concomitant]
     Route: 048
     Dates: start: 20250206, end: 20250216
  24. Amifostine for injection [Concomitant]
     Route: 042
     Dates: start: 20250207, end: 20250207
  25. Amifostine for injection [Concomitant]
     Route: 042
     Dates: start: 20250212, end: 20250216
  26. Ondansetron hydrochloride injection [Concomitant]
     Route: 042
  27. Ondansetron hydrochloride injection [Concomitant]
     Route: 042
     Dates: start: 20250212, end: 20250216
  28. DEXAMETHASONE SODIUM PHOSPHATE [Concomitant]
     Active Substance: DEXAMETHASONE SODIUM PHOSPHATE
     Route: 042
     Dates: start: 20250212, end: 20250216
  29. METHYLPREDNISOLONE SODIUM SUCCINATE [Concomitant]
     Active Substance: METHYLPREDNISOLONE SODIUM SUCCINATE
     Route: 042
  30. Pegylated recombinant human granulocyte stimulating factor injection [Concomitant]
     Route: 050
     Dates: start: 20250217, end: 20250217
  31. METHYLCOBALAMIN [Concomitant]
     Active Substance: METHYLCOBALAMIN
     Route: 048
  32. Valacyclovir HydrochlorideTablets [Concomitant]
     Route: 048
  33. Calcium Carbonate and Vitamin D3 Tablets [Concomitant]
     Route: 048
     Dates: start: 20250306, end: 20250311
  34. Omeprazole Enteric-coated Capsules [Concomitant]
     Route: 048
     Dates: start: 20250316, end: 20250322
  35. Methylprednisolone SodiumSuccinate for Injection [Concomitant]
     Route: 042
     Dates: start: 20250316, end: 20250316
  36. Compound Paracetamol Tablets [Concomitant]
     Route: 048
     Dates: start: 20250316, end: 20250317
  37. PROMETHAZINE [Concomitant]
     Active Substance: PROMETHAZINE HYDROCHLORIDE
     Route: 030
     Dates: start: 20250316, end: 20250317
  38. Amifostine for Injection [Concomitant]
     Route: 042
     Dates: start: 20250317, end: 20250321
  39. Ondansetron Hydrochloride Injection [Concomitant]
     Route: 042
     Dates: start: 20250317, end: 20250321

REACTIONS (4)
  - White blood cell count increased [Recovered/Resolved]
  - Platelet count increased [Recovered/Resolved]
  - Anaemia [Recovered/Resolved]
  - Neutrophil count increased [Recovered/Resolved]

NARRATIVE: CASE EVENT DATE: 20250307
